FAERS Safety Report 4528367-4 (Version None)
Quarter: 2004Q4

REPORT INFORMATION
  Report Type: 
  Country: None (occurrence: None)
  Receive Date: 20041126
  Receipt Date: 20040930
  Transmission Date: 20050328
  Serious: No
  Sender: FDA-Public Use
  Company Number: 2004US002253

PATIENT
  Age: 27 Year
  Sex: Female
  Weight: 97.5 kg

DRUGS (9)
  1. ALOXI [Suspect]
     Indication: PROPHYLAXIS OF NAUSEA AND VOMITING
     Dosage: 0.25 MG, SINGLE, INTRAVENOUS
     Route: 042
     Dates: start: 20040902, end: 20040902
  2. ALOXI [Suspect]
     Indication: PROPHYLAXIS OF NAUSEA AND VOMITING
     Dosage: 0.25 MG, SINGLE, INTRAVENOUS
     Route: 042
     Dates: start: 20040930, end: 20040930
  3. DEXAMETHASONE [Concomitant]
  4. SODIUM CHLORIDE [Concomitant]
  5. INVESTIGATIONAL DRUG [Concomitant]
  6. CISPLATIN [Concomitant]
  7. COUMADIN [Concomitant]
  8. LORAZEPAM [Concomitant]
  9. SCOPOLAMINE (HYOSCINE) [Concomitant]

REACTIONS (1)
  - BACK PAIN [None]
